FAERS Safety Report 16183932 (Version 4)
Quarter: 2019Q2

REPORT INFORMATION
  Report Type: Spontaneous
  Country: US (occurrence: US)
  Receive Date: 20190411
  Receipt Date: 20190611
  Transmission Date: 20190711
  Serious: Yes (Hospitalization)
  Sender: FDA-Public Use
  Company Number: US-ENDO PHARMACEUTICALS INC-2019-103632

PATIENT
  Age: 34 Year
  Sex: Male
  Weight: 95.24 kg

DRUGS (6)
  1. XIAFLEX [Suspect]
     Active Substance: COLLAGENASE CLOSTRIDIUM HISTOLYTICUM
     Indication: PEYRONIE^S DISEASE
     Dosage: UNK UNKNOWN, UNKNOWN (CYCLE 2, INJECTION 2)
     Route: 026
     Dates: start: 20190328
  2. XIAFLEX [Suspect]
     Active Substance: COLLAGENASE CLOSTRIDIUM HISTOLYTICUM
     Dosage: UNK UNKNOWN, UNKNOWN (CYCLE 1, INJECTION 1)
     Route: 026
     Dates: start: 20190218
  3. WELLBUTRIN [Concomitant]
     Active Substance: BUPROPION HYDROCHLORIDE
     Indication: PRODUCT USED FOR UNKNOWN INDICATION
     Dosage: 150 MG, BID
     Route: 048
  4. XIAFLEX [Suspect]
     Active Substance: COLLAGENASE CLOSTRIDIUM HISTOLYTICUM
     Dosage: UNK UNKNOWN, UNKNOWN (CYCLE 2, INJECTION 1)
     Route: 026
     Dates: start: 2019
  5. ABILIFY [Concomitant]
     Active Substance: ARIPIPRAZOLE
     Indication: PRODUCT USED FOR UNKNOWN INDICATION
     Dosage: 5 MG, DAILY
     Route: 048
  6. XIAFLEX [Suspect]
     Active Substance: COLLAGENASE CLOSTRIDIUM HISTOLYTICUM
     Dosage: UNK UNKNOWN, UNKNOWN (CYCLE 1, INJECTION 2)
     Route: 026
     Dates: start: 2019

REACTIONS (3)
  - Corpora cavernosa surgery [Recovering/Resolving]
  - Fracture of penis [Recovering/Resolving]
  - Blister [Recovered/Resolved]

NARRATIVE: CASE EVENT DATE: 2019
